FAERS Safety Report 9191831 (Version 1)
Quarter: 2013Q1

REPORT INFORMATION
  Report Type: Spontaneous
  Country: US (occurrence: US)
  Receive Date: 20130327
  Receipt Date: 20130327
  Transmission Date: 20140127
  Serious: No
  Sender: FDA-Public Use
  Company Number: US-009507513-1303USA010152

PATIENT
  Sex: Female

DRUGS (1)
  1. TRUSOPT [Suspect]
     Route: 047

REACTIONS (2)
  - Foreign body in eye [Unknown]
  - Product dropper issue [Unknown]
